FAERS Safety Report 13628546 (Version 1)
Quarter: 2017Q2

REPORT INFORMATION
  Report Type: Spontaneous
  Country: PH (occurrence: PH)
  Receive Date: 20170608
  Receipt Date: 20170608
  Transmission Date: 20170830
  Serious: Yes (Other)
  Sender: FDA-Public Use
  Company Number: PH-PFIZER INC-2017248742

PATIENT
  Sex: Female

DRUGS (1)
  1. LIPITOR [Suspect]
     Active Substance: ATORVASTATIN CALCIUM
     Dosage: UNK

REACTIONS (1)
  - Osteoarthritis [Unknown]
